FAERS Safety Report 26154155 (Version 1)
Quarter: 2025Q4

REPORT INFORMATION
  Report Type: Other
  Country: GB (occurrence: GB)
  Receive Date: 20251215
  Receipt Date: 20251215
  Transmission Date: 20260118
  Serious: Yes (Death)
  Sender: MACLEODS
  Company Number: GB-MMM-Otsuka-JL4XE85P

PATIENT

DRUGS (1)
  1. ARIPIPRAZOLE [Suspect]
     Active Substance: ARIPIPRAZOLE
     Indication: Product used for unknown indication
     Dosage: SUSPENSION FOR INJECTION IN PRE-FILLED SYRINGE 400 MG EVERY 4 WEEKS (1 PER 4 WEEKS)
     Route: 065

REACTIONS (1)
  - Death [Fatal]
